FAERS Safety Report 14381809 (Version 6)
Quarter: 2018Q1

REPORT INFORMATION
  Report Type: Report from Study
  Country: JP (occurrence: JP)
  Receive Date: 20180112
  Receipt Date: 20180315
  Transmission Date: 20180509
  Serious: Yes (Hospitalization)
  Sender: FDA-Public Use
  Company Number: PHJP2018JP000521

PATIENT
  Age: 73 Year
  Sex: Male
  Weight: 59.4 kg

DRUGS (21)
  1. FARYDAK [Suspect]
     Active Substance: PANOBINOSTAT
     Indication: PLASMA CELL MYELOMA
     Dosage: 10 MG, QW3
     Route: 048
     Dates: start: 20161216
  2. FARYDAK [Suspect]
     Active Substance: PANOBINOSTAT
     Dosage: 10 MG, QW3
     Route: 048
     Dates: start: 20171225
  3. LOXONIN [Concomitant]
     Active Substance: LOXOPROFEN SODIUM
     Indication: LUMBAR SPINAL STENOSIS
     Dosage: 100 MG, UNK
     Route: 062
     Dates: start: 20160329
  4. FLUMETHOLON [Concomitant]
     Active Substance: FLUOROMETHOLONE
     Indication: CATARACT
     Dosage: UNK UNK, QID
     Route: 047
     Dates: start: 20160723
  5. BORTEZOMIB [Suspect]
     Active Substance: BORTEZOMIB
     Indication: PLASMA CELL MYELOMA
     Dosage: 2.12 MG, QW2
     Route: 058
     Dates: start: 20161216
  6. EURASON CREAM [Suspect]
     Active Substance: DEXAMETHASONE
     Dosage: 12 MG, QW2
     Route: 048
  7. FAMOTIDINE. [Concomitant]
     Active Substance: FAMOTIDINE
     Indication: PROPHYLAXIS AGAINST GASTROINTESTINAL ULCER
     Dosage: 10 MG, UNK
     Route: 048
     Dates: start: 20160907
  8. ZOVIRAX [Concomitant]
     Active Substance: ACYCLOVIR
     Indication: INFECTION PROPHYLAXIS
     Dosage: 200 MG, UNK
     Route: 048
     Dates: start: 20161216
  9. PROMAC//POLAPREZINC [Concomitant]
     Indication: DECREASED APPETITE
     Dosage: 1 G, UNK
     Route: 048
     Dates: start: 20170105
  10. AIMIX [Concomitant]
     Active Substance: AMLODIPINE BESYLATE\IRBESARTAN
     Indication: HYPERTENSION
     Dosage: 1 DF, UNK
     Route: 048
     Dates: start: 20160708
  11. HALCION [Concomitant]
     Active Substance: TRIAZOLAM
     Indication: INSOMNIA
     Dosage: 0.25 MG, UNK
     Route: 048
     Dates: start: 20160711
  12. MOHRUS [Concomitant]
     Active Substance: KETOPROFEN
     Indication: LUMBAR SPINAL STENOSIS
     Dosage: UNK
     Route: 062
     Dates: start: 20170612
  13. EURASON CREAM [Suspect]
     Active Substance: DEXAMETHASONE
     Indication: PLASMA CELL MYELOMA
     Dosage: 20 MG, QW4
     Route: 048
     Dates: start: 20161216
  14. HYALEIN [Concomitant]
     Active Substance: HYALURONATE SODIUM
     Indication: CATARACT
     Dosage: ADEQUATE DOSE
     Route: 047
     Dates: start: 20160723
  15. PRIMPERAN [Concomitant]
     Active Substance: METOCLOPRAMIDE HYDROCHLORIDE
     Indication: NAUSEA
  16. KERATINAMIN [Concomitant]
     Active Substance: UREA
     Indication: DRY SKIN PROPHYLAXIS
     Dosage: UNK (ADEQUATE DOSE)
     Route: 061
     Dates: start: 20171207
  17. POPIYODON [Concomitant]
     Indication: LUMBAR SPINAL STENOSIS
     Dosage: UNK (ADEQUATE DOSE)
     Route: 061
     Dates: start: 20170612
  18. BORTEZOMIB [Suspect]
     Active Substance: BORTEZOMIB
     Dosage: 2.12 MG, QW
     Route: 058
  19. HIRUDOID [Concomitant]
     Active Substance: GLYCOSAMINOGLYCANS
     Indication: DRY SKIN PROPHYLAXIS
     Dosage: ADEQUATE DOSE
     Route: 061
     Dates: start: 20160914
  20. BAKTAR [Concomitant]
     Active Substance: SULFAMETHOXAZOLE\TRIMETHOPRIM
     Indication: INFECTION PROPHYLAXIS
     Dosage: 1 DF, UNK
     Route: 048
     Dates: start: 20161216
  21. PRIMPERAN [Concomitant]
     Active Substance: METOCLOPRAMIDE HYDROCHLORIDE
     Indication: HICCUPS
     Dosage: 5 MG, UNK
     Route: 048
     Dates: start: 20161217

REACTIONS (1)
  - Malaise [Recovered/Resolved]

NARRATIVE: CASE EVENT DATE: 20171231
